FAERS Safety Report 8550307-1 (Version None)
Quarter: 2012Q3

REPORT INFORMATION
  Report Type: 
  Country: None (occurrence: None)
  Receive Date: 20120730
  Receipt Date: 20120726
  Transmission Date: 20120928
  Serious: Yes (Other)
  Sender: FDA-Public Use
  Company Number: PHHO2011BF17444

PATIENT
  Sex: Female

DRUGS (4)
  1. QUININE SULFATE [Concomitant]
     Indication: MALARIA
     Dosage: 900 MG, UNK
     Route: 048
     Dates: start: 20111011, end: 20111017
  2. LEVONORGESTREL + ETHINYL ESTRADIOL [Concomitant]
     Indication: CONTRACEPTION
  3. CGP 56697 [Suspect]
     Indication: MALARIA
     Dosage: 800/480  MG, BID
     Route: 048
     Dates: start: 20110602, end: 20110604
  4. ACETAMINOPHEN [Concomitant]
     Indication: MALARIA
     Dosage: 2 G, UNK
     Route: 048
     Dates: start: 20111011, end: 20111015

REACTIONS (2)
  - MATERNAL EXPOSURE DURING PREGNANCY [None]
  - ABORTION SPONTANEOUS [None]
